FAERS Safety Report 19400892 (Version 1)
Quarter: 2021Q2

REPORT INFORMATION
  Report Type: Other
  Country: GR (occurrence: GR)
  Receive Date: 20210611
  Receipt Date: 20210611
  Transmission Date: 20210717
  Serious: Yes (Other)
  Sender: FDA-Public Use
  Company Number: GR-ROCHE-2842548

PATIENT
  Age: 47 Year
  Sex: Female

DRUGS (7)
  1. METHOTREXATE. [Concomitant]
     Active Substance: METHOTREXATE
     Route: 037
  2. CARBOPLATIN. [Concomitant]
     Active Substance: CARBOPLATIN
  3. XGEVA [Suspect]
     Active Substance: DENOSUMAB
     Indication: PRODUCT USED FOR UNKNOWN INDICATION
     Route: 065
  4. PEMETREXED. [Concomitant]
     Active Substance: PEMETREXED
  5. BEVACIZUMAB. [Suspect]
     Active Substance: BEVACIZUMAB
     Indication: LUNG ADENOCARCINOMA
     Route: 065
  6. CRIZOTINIB [Concomitant]
     Active Substance: CRIZOTINIB
  7. NIVOLUMAB [Concomitant]
     Active Substance: NIVOLUMAB

REACTIONS (3)
  - Lung adenocarcinoma [Unknown]
  - Hypertriglyceridaemia [Recovered/Resolved]
  - Hepatotoxicity [Recovered/Resolved]
